FAERS Safety Report 5154852-0 (Version None)
Quarter: 2006Q4

REPORT INFORMATION
  Report Type: 
  Country: None (occurrence: None)
  Receive Date: 20061121
  Receipt Date: 20061012
  Transmission Date: 20070319
  Serious: Yes (Hospitalization)
  Sender: FDA-Public Use
  Company Number: AU-ELI_LILLY_AND_COMPANY-NZ200611000483

PATIENT
  Age: 44 Year
  Sex: Male
  Weight: 62.6 kg

DRUGS (6)
  1. GEMCITABINE HCL [Suspect]
     Indication: PANCREATIC CARCINOMA
     Dosage: 1000 MG/M2, OTHER
     Route: 042
     Dates: start: 20060531
  2. GEMCITABINE HCL [Suspect]
     Dosage: 750 MG/M2, OTHER
     Dates: start: 20060829, end: 20060905
  3. PANADOL                                 /NEZ/ [Concomitant]
     Dosage: 1 G, UNK
     Route: 048
     Dates: start: 20061003
  4. METOCLOPRAMIDE [Concomitant]
     Dosage: 30 MG, UNK
     Dates: start: 20061003
  5. ONDANSETRON [Concomitant]
     Dosage: 8 MG, UNK
     Route: 048
     Dates: start: 20060531
  6. DOMPERIDONE [Concomitant]
     Dosage: 10 MG, UNK
     Route: 048
     Dates: start: 20060531

REACTIONS (4)
  - HAEMOLYTIC URAEMIC SYNDROME [None]
  - MICROANGIOPATHY [None]
  - RENAL IMPAIRMENT [None]
  - THROMBOCYTOPENIC PURPURA [None]
